FAERS Safety Report 5840113-0 (Version None)
Quarter: 2008Q3

REPORT INFORMATION
  Report Type: 
  Country: None (occurrence: None)
  Receive Date: 20080811
  Receipt Date: 20080808
  Transmission Date: 20090109
  Serious: Yes (Other)
  Sender: FDA-Public Use
  Company Number: B0532673A

PATIENT
  Age: 59 Year
  Sex: Male

DRUGS (3)
  1. SAWACILLIN [Suspect]
     Route: 048
     Dates: start: 20080215, end: 20080221
  2. CLARITHROMYCIN [Concomitant]
     Route: 065
     Dates: start: 20080215, end: 20080221
  3. PARIET [Concomitant]
     Route: 065
     Dates: start: 20080215, end: 20080221

REACTIONS (1)
  - GASTRIC CANCER [None]
